FAERS Safety Report 6680126-2 (Version None)
Quarter: 2010Q2

REPORT INFORMATION
  Report Type: 
  Country: None (occurrence: None)
  Receive Date: 20100409
  Receipt Date: 20100326
  Transmission Date: 20101027
  Serious: Yes (Other)
  Sender: FDA-Public Use
  Company Number: 1000011836

PATIENT
  Age: 20 Year
  Sex: Female
  Weight: 92 kg

DRUGS (5)
  1. CITALOPRAM HYDROBROMIDE [Suspect]
     Indication: OBSESSIVE-COMPULSIVE DISORDER
     Dosage: 10 MG (10 MG, 1 IN 1 D)
     Dates: start: 20091205
  2. CLOZARIL [Suspect]
     Indication: SCHIZOPHRENIA
     Dosage: 300 MG (300 MG, 1 IN 1 D); 200 MG (275 MG, 1 IN 1 D)
     Dates: start: 20030401, end: 20100114
  3. CLOZARIL [Suspect]
     Indication: SCHIZOPHRENIA
     Dosage: 300 MG (300 MG, 1 IN 1 D); 200 MG (275 MG, 1 IN 1 D)
     Dates: start: 20100115
  4. DOCUSATE SODIUM [Concomitant]
  5. LANSOPRAZOLE [Concomitant]

REACTIONS (6)
  - ANTIPSYCHOTIC DRUG LEVEL ABOVE THERAPEUTIC [None]
  - ANXIETY [None]
  - DRUG INTERACTION [None]
  - HYPOCHONDRIASIS [None]
  - IMPULSIVE BEHAVIOUR [None]
  - REPETITIVE SPEECH [None]
